FAERS Safety Report 9132488 (Version 2)
Quarter: 2013Q1

REPORT INFORMATION
  Report Type: Report from Study
  Country: AU (occurrence: AU)
  Receive Date: 20130301
  Receipt Date: 20130311
  Transmission Date: 20140127
  Serious: Yes (Other)
  Sender: FDA-Public Use
  Company Number: AU-ROCHE-1195522

PATIENT
  Sex: Male

DRUGS (4)
  1. LUCENTIS [Suspect]
     Indication: AGE-RELATED MACULAR DEGENERATION
     Route: 050
     Dates: start: 20120821
  2. LUCENTIS [Suspect]
     Route: 050
     Dates: start: 20120918
  3. LUCENTIS [Suspect]
     Route: 050
     Dates: start: 201211
  4. LUCENTIS [Suspect]
     Route: 050
     Dates: start: 201302, end: 201302

REACTIONS (5)
  - Pleurisy [Not Recovered/Not Resolved]
  - Feeling abnormal [Recovering/Resolving]
  - Visual acuity reduced [Not Recovered/Not Resolved]
  - Vision blurred [Not Recovered/Not Resolved]
  - Drug ineffective [Unknown]
